FAERS Safety Report 7887459-2 (Version None)
Quarter: 2011Q4

REPORT INFORMATION
  Report Type: 
  Country: None (occurrence: None)
  Receive Date: 20111102
  Receipt Date: 20110719
  Transmission Date: 20120403
  Serious: No
  Sender: FDA-Public Use
  Company Number: US-AMGEN-USASP2011036673

PATIENT
  Age: 56 Year
  Sex: Female

DRUGS (2)
  1. ENBREL [Suspect]
     Indication: RHEUMATOID ARTHRITIS
     Dosage: 50 MG, QWK
     Dates: start: 20100505, end: 20110615
  2. ANTIBIOTICS [Concomitant]

REACTIONS (6)
  - THROAT IRRITATION [None]
  - INSOMNIA [None]
  - COUGH [None]
  - APHONIA [None]
  - PYREXIA [None]
  - NASAL CONGESTION [None]
